FAERS Safety Report 19928218 (Version 1)
Quarter: 2021Q4

REPORT INFORMATION
  Report Type: Spontaneous
  Country: US (occurrence: US)
  Receive Date: 20211006
  Receipt Date: 20211006
  Transmission Date: 20220304
  Serious: Yes (Hospitalization)
  Sender: FDA-Public Use
  Company Number: None

PATIENT
  Age: 13 Year
  Sex: Male
  Weight: 49 kg

DRUGS (9)
  1. CASIRIVIMAB\IMDEVIMAB [Suspect]
     Active Substance: CASIRIVIMAB\IMDEVIMAB
     Indication: COVID-19
     Dosage: ?          OTHER FREQUENCY:ONCE;
     Route: 041
     Dates: start: 20210920, end: 20210920
  2. amoxicillin 875mg q12h x 10 days [Concomitant]
  3. butalbital/APAP/caffeine prn headache [Concomitant]
  4. methylphenidate ER 18mg daily [Concomitant]
  5. ALBUTEROL SULFATE\FLUTICASONE PROPIONATE [Concomitant]
     Active Substance: ALBUTEROL SULFATE\FLUTICASONE PROPIONATE
  6. FLUTICASONE [Concomitant]
     Active Substance: FLUTICASONE
  7. levalbuterol inhaler or nebs [Concomitant]
  8. levocetirizine 2.5mg daily [Concomitant]
  9. Medrol Dose-Pak [Concomitant]

REACTIONS (4)
  - Dyspnoea [None]
  - Throat irritation [None]
  - Anxiety [None]
  - Erythema [None]

NARRATIVE: CASE EVENT DATE: 20210920
